FAERS Safety Report 24342480 (Version 1)
Quarter: 2024Q3

REPORT INFORMATION
  Report Type: Spontaneous
  Country: US (occurrence: US)
  Receive Date: 20240920
  Receipt Date: 20240920
  Transmission Date: 20241017
  Serious: No
  Sender: LUPIN
  Company Number: US-LUPIN PHARMACEUTICALS INC.-2024-08780

PATIENT

DRUGS (1)
  1. ALBUTEROL SULFATE [Suspect]
     Active Substance: ALBUTEROL SULFATE
     Indication: Asthma
     Dosage: UNK, PRN, 2-PUFFS EVERY 4 HRS AS NEEDED
     Dates: start: 20240827

REACTIONS (4)
  - Product dose omission issue [Unknown]
  - Device deposit issue [Unknown]
  - Device delivery system issue [Unknown]
  - No adverse event [Unknown]
